FAERS Safety Report 17716588 (Version 2)
Quarter: 2020Q2

REPORT INFORMATION
  Report Type: Spontaneous
  Country: US (occurrence: US)
  Receive Date: 20200428
  Receipt Date: 20200512
  Transmission Date: 20200714
  Serious: Yes (Other)
  Sender: FDA-Public Use
  Company Number: US-GLAXOSMITHKLINE-US2020070809

PATIENT
  Sex: Female

DRUGS (1)
  1. INCRUSE ELLIPTA [Suspect]
     Active Substance: UMECLIDINIUM BROMIDE
     Indication: ASTHMA
     Dosage: 1 PUFF(S), 1D
     Route: 055
     Dates: start: 202003, end: 2020

REACTIONS (5)
  - Oropharyngeal pain [Not Recovered/Not Resolved]
  - Mouth haemorrhage [Unknown]
  - Oropharyngeal pain [Unknown]
  - Throat irritation [Recovered/Resolved]
  - Oral blood blister [Recovering/Resolving]

NARRATIVE: CASE EVENT DATE: 2020
